FAERS Safety Report 4300968-8 (Version None)
Quarter: 2004Q1

REPORT INFORMATION
  Report Type: 
  Country: None (occurrence: None)
  Receive Date: 20040219
  Receipt Date: 20040209
  Transmission Date: 20041129
  Serious: Yes (Other)
  Sender: FDA-Public Use
  Company Number: 2004198214DE

PATIENT
  Age: 38 Year
  Sex: Female

DRUGS (2)
  1. DELTA-CORTEF [Suspect]
     Indication: SJOGREN'S SYNDROME
     Dosage: 20 MG, QD,
  2. METHOTREXATE [Concomitant]

REACTIONS (1)
  - OROPHARYNGEAL CANDIDIASIS [None]
